FAERS Safety Report 4842433-5 (Version None)
Quarter: 2005Q4

REPORT INFORMATION
  Report Type: 
  Country: None (occurrence: None)
  Receive Date: 20051129
  Receipt Date: 20051116
  Transmission Date: 20060501
  Serious: Yes (Hospitalization)
  Sender: FDA-Public Use
  Company Number: US200511001087

PATIENT
  Age: 49 Year
  Sex: Female

DRUGS (2)
  1. GEMZAR [Suspect]
     Indication: BLADDER CANCER
     Dates: end: 20050801
  2. CARBOPLATIN [Concomitant]

REACTIONS (2)
  - AUTOIMMUNE DISORDER [None]
  - VASCULITIS [None]
